FAERS Safety Report 5018564-6 (Version None)
Quarter: 2006Q2

REPORT INFORMATION
  Report Type: 
  Country: None (occurrence: None)
  Receive Date: 20060414
  Receipt Date: 20051220
  Transmission Date: 20061013
  Serious: No
  Sender: FDA-Public Use
  Company Number: 2005SP004482

PATIENT
  Age: 50 Year
  Sex: Female
  Weight: 70.3075 kg

DRUGS (9)
  1. LUNESTA [Suspect]
     Indication: INSOMNIA
     Dosage: 2 MG;PRN;ORAL
     Route: 048
     Dates: start: 20051216
  2. PROZAC [Concomitant]
  3. PRILOSEC [Concomitant]
  4. HYTRIN [Concomitant]
  5. AVAPRO [Concomitant]
  6. CALAN [Concomitant]
  7. NIASPAN [Concomitant]
  8. INDAPAMIDE [Concomitant]
  9. ESTROGENS CONJUGATED [Concomitant]

REACTIONS (1)
  - DYSGEUSIA [None]
